FAERS Safety Report 16283042 (Version 1)
Quarter: 2019Q2

REPORT INFORMATION
  Report Type: Report from Study
  Country: US (occurrence: US)
  Receive Date: 20190507
  Receipt Date: 20190507
  Transmission Date: 20190711
  Serious: Yes (Disabling)
  Sender: FDA-Public Use
  Company Number: PHHY2019US097642

PATIENT
  Age: 68 Year
  Sex: Male
  Weight: 62 kg

DRUGS (5)
  1. ETHAMBUTOL [Concomitant]
     Active Substance: ETHAMBUTOL HYDROCHLORIDE
     Indication: PULMONARY CAVITATION
     Dosage: UNK
     Route: 065
  2. AMIKACIN. [Concomitant]
     Active Substance: AMIKACIN
     Indication: PULMONARY CAVITATION
     Dosage: (2 MONTHS)
     Route: 065
  3. RIFAMPIN. [Concomitant]
     Active Substance: RIFAMPIN
     Indication: PULMONARY CAVITATION
     Dosage: UNK
     Route: 065
  4. AZITHROMYCIN ANHYDROUS. [Concomitant]
     Active Substance: AZITHROMYCIN ANHYDROUS
     Indication: PULMONARY CAVITATION
     Dosage: UNK
     Route: 065
  5. LAMPRENE [Suspect]
     Active Substance: CLOFAZIMINE
     Indication: MYCOBACTERIUM AVIUM COMPLEX INFECTION
     Dosage: 100 MG, QD
     Route: 048
     Dates: start: 20190418, end: 20190418

REACTIONS (4)
  - Fatigue [Recovering/Resolving]
  - Abdominal pain [Recovering/Resolving]
  - Nausea [Recovering/Resolving]
  - Vertigo [Recovering/Resolving]

NARRATIVE: CASE EVENT DATE: 20190418
